FAERS Safety Report 7658095-8 (Version None)
Quarter: 2011Q3

REPORT INFORMATION
  Report Type: 
  Country: None (occurrence: None)
  Receive Date: 20110802
  Receipt Date: 20110722
  Transmission Date: 20111222
  Serious: Yes (Hospitalization)
  Sender: FDA-Public Use
  Company Number: LEO-2011-00613

PATIENT
  Age: 53 Year
  Sex: Female

DRUGS (5)
  1. OXYCODONE HYDROCHLORIDE [Suspect]
     Dosage: ORAL
     Route: 048
     Dates: start: 20110101
  2. INNOHEP [Suspect]
     Indication: PRODUCT USED FOR UNKNOWN INDICATION
     Dosage: SUBCUTANEOUS
     Route: 058
     Dates: start: 20110101
  3. ACETAMINOPHEN [Suspect]
     Dosage: ORAL
     Route: 048
     Dates: start: 20110101, end: 20110129
  4. CELECOXIB [Suspect]
     Dosage: ORAL
     Route: 048
     Dates: start: 20110101
  5. OXYCONTIN [Suspect]
     Dosage: ORAL
     Route: 048
     Dates: start: 20110101

REACTIONS (3)
  - DYSGEUSIA [None]
  - PRURITUS [None]
  - VERTIGO [None]
